FAERS Safety Report 14705951 (Version 1)
Quarter: 2018Q2

REPORT INFORMATION
  Report Type: Spontaneous
  Country: CM (occurrence: CM)
  Receive Date: 20180402
  Receipt Date: 20180402
  Transmission Date: 20180711
  Serious: Yes (Hospitalization, Disabling, Other)
  Sender: FDA-Public Use
  Company Number: CM-MYLANLABS-2018M1020076

PATIENT
  Age: 3 Year
  Sex: Female

DRUGS (4)
  1. COTRIMOXAZOLE [Concomitant]
     Active Substance: SULFAMETHOXAZOLE\TRIMETHOPRIM
     Indication: OPPORTUNISTIC INFECTION PROPHYLAXIS
     Dosage: 480MG DAILY
     Route: 065
     Dates: start: 2013
  2. ZIDOVUDINE. [Concomitant]
     Active Substance: ZIDOVUDINE
     Indication: HIV INFECTION WHO CLINICAL STAGE III
     Dosage: 60MG
     Route: 065
     Dates: start: 201303
  3. LAMIVUDINE. [Concomitant]
     Active Substance: LAMIVUDINE
     Indication: HIV INFECTION WHO CLINICAL STAGE III
     Dosage: 30MG
     Route: 065
     Dates: start: 201303
  4. NEVIRAPINE. [Suspect]
     Active Substance: NEVIRAPINE
     Indication: HIV INFECTION WHO CLINICAL STAGE III
     Dosage: INITIATED AT A DOSAGE OF 100MG ONCE DAILY FOR TWO WEEKS AND THEN A TWICE-DAILY INCREMENT WAS PLAN...
     Route: 065
     Dates: start: 201303

REACTIONS (2)
  - Blindness [Not Recovered/Not Resolved]
  - Toxic epidermal necrolysis [Recovering/Resolving]

NARRATIVE: CASE EVENT DATE: 2013
